FAERS Safety Report 4831343-5 (Version None)
Quarter: 2005Q4

REPORT INFORMATION
  Report Type: 
  Country: None (occurrence: None)
  Receive Date: 20051118
  Receipt Date: 20051111
  Transmission Date: 20060501
  Serious: Yes (Hospitalization)
  Sender: FDA-Public Use
  Company Number: 2005PK02125

PATIENT
  Age: 747 Month
  Sex: Female
  Weight: 74 kg

DRUGS (10)
  1. NEXIUM [Suspect]
     Indication: STOMACH DISCOMFORT
     Route: 048
     Dates: start: 20050626, end: 20050906
  2. CITALOPRAM [Interacting]
     Indication: DEPRESSION
     Dates: end: 20050831
  3. CITALOPRAM [Interacting]
     Dates: start: 20050901
  4. VALPROATE SODIUM [Concomitant]
     Indication: PROPHYLAXIS
     Dates: start: 20050701
  5. MUCO-MEPHA [Concomitant]
     Indication: LUNG DISORDER
  6. SERETIDE DISKUS [Concomitant]
     Indication: LUNG DISORDER
  7. ASCORBIC ACID [Concomitant]
  8. MULTI-VITAMINS [Concomitant]
  9. SURMONTIL [Concomitant]
     Dates: end: 20050701
  10. QUILONORM [Concomitant]
     Indication: BIPOLAR I DISORDER
     Route: 048

REACTIONS (2)
  - DRUG INTERACTION [None]
  - PARAESTHESIA [None]
